FAERS Safety Report 11619132 (Version 2)
Quarter: 2015Q4

REPORT INFORMATION
  Report Type: Spontaneous
  Country: LB (occurrence: LB)
  Receive Date: 20151012
  Receipt Date: 20151103
  Transmission Date: 20160304
  Serious: No
  Sender: FDA-Public Use
  Company Number: LB-NOVOPROD-466111

PATIENT
  Age: 7 Year
  Sex: Male

DRUGS (2)
  1. NOVOSEVEN [Suspect]
     Active Substance: COAGULATION FACTOR VIIA RECOMBINANT HUMAN
     Indication: HAEMORRHAGE
  2. NOVOSEVEN [Suspect]
     Active Substance: COAGULATION FACTOR VIIA RECOMBINANT HUMAN
     Indication: HAEMOPHILIA
     Dosage: 23 TIMES AT THE DOSE OF 270MCG/KG
     Route: 065
     Dates: start: 20110930

REACTIONS (3)
  - Drug ineffective [Unknown]
  - Haemorrhage [Unknown]
  - Drug resistance [Unknown]
